FAERS Safety Report 19143753 (Version 2)
Quarter: 2024Q3

REPORT INFORMATION
  Report Type: Spontaneous
  Country: US (occurrence: None)
  Receive Date: 20210415
  Receipt Date: 20240709
  Transmission Date: 20241016
  Serious: No
  Sender: ASTRAZENECA
  Company Number: 2021A188546

PATIENT
  Sex: Female
  Weight: 72.6 kg

DRUGS (1)
  1. FASENRA [Suspect]
     Active Substance: BENRALIZUMAB
     Indication: Asthma
     Route: 058
     Dates: start: 201905

REACTIONS (6)
  - White blood cell count decreased [Unknown]
  - Fatigue [Recovered/Resolved]
  - Tremor [Recovered/Resolved]
  - Anxiety [Recovered/Resolved]
  - Confusional state [Recovered/Resolved]
  - Malaise [Recovered/Resolved]
